FAERS Safety Report 24267217 (Version 2)
Quarter: 2024Q4

REPORT INFORMATION
  Report Type: Report from Study
  Country: CA (occurrence: CA)
  Receive Date: 20240830
  Receipt Date: 20241001
  Transmission Date: 20250115
  Serious: Yes (Other)
  Sender: TAKEDA
  Company Number: CA-TAKEDA-2023TUS046609

PATIENT
  Sex: Male

DRUGS (1)
  1. VEDOLIZUMAB [Suspect]
     Active Substance: VEDOLIZUMAB
     Indication: Crohn^s disease
     Dosage: 300 MILLIGRAM
     Route: 042
     Dates: start: 20230328

REACTIONS (6)
  - Crohn^s disease [Unknown]
  - Gastrointestinal scarring [Unknown]
  - Abdominal mass [Unknown]
  - Mouth ulceration [Unknown]
  - Arthralgia [Unknown]
  - Fatigue [Unknown]
